FAERS Safety Report 11080037 (Version 3)
Quarter: 2015Q2

REPORT INFORMATION
  Report Type: Spontaneous
  Country: AT (occurrence: AT)
  Receive Date: 20150430
  Receipt Date: 20150520
  Transmission Date: 20150821
  Serious: Yes (Death, Hospitalization)
  Sender: FDA-Public Use
  Company Number: AT-JNJFOC-20150420304

PATIENT
  Age: 89 Year
  Sex: Female

DRUGS (2)
  1. XARELTO [Suspect]
     Active Substance: RIVAROXABAN
     Indication: ATRIAL FIBRILLATION
     Route: 048
     Dates: start: 201401, end: 201404
  2. XARELTO [Suspect]
     Active Substance: RIVAROXABAN
     Indication: CEREBROVASCULAR ACCIDENT PROPHYLAXIS
     Route: 048
     Dates: start: 201401, end: 201404

REACTIONS (2)
  - No therapeutic response [Unknown]
  - Ischaemic cerebral infarction [Fatal]

NARRATIVE: CASE EVENT DATE: 20150404
